FAERS Safety Report 4501689-9 (Version None)
Quarter: 2004Q4

REPORT INFORMATION
  Report Type: 
  Country: None (occurrence: None)
  Receive Date: 20041115
  Receipt Date: 20041115
  Transmission Date: 20050328
  Serious: Yes (Hospitalization)
  Sender: FDA-Public Use
  Company Number: None

PATIENT
  Age: 4 Year
  Sex: Male
  Weight: 39.4629 kg

DRUGS (1)
  1. ORAPRED [Suspect]
     Indication: DYSPNOEA
     Dosage: 15 MG/5 ML

REACTIONS (3)
  - AGGRESSION [None]
  - RESTLESSNESS [None]
  - SCREAMING [None]
